FAERS Safety Report 7056390-7 (Version None)
Quarter: 2010Q4

REPORT INFORMATION
  Report Type: 
  Country: None (occurrence: None)
  Receive Date: 20101021
  Receipt Date: 20101008
  Transmission Date: 20110411
  Serious: Yes (Hospitalization, Other)
  Sender: FDA-Public Use
  Company Number: PHHY2010US67794

PATIENT
  Sex: Male

DRUGS (18)
  1. RECLAST [Suspect]
  2. PRASTERONE [Concomitant]
     Dosage: 50 MG, BID
  3. VITAMIN B [Concomitant]
     Dosage: UNK
  4. FISH OIL [Concomitant]
     Dosage: 1000 MG, BID
  5. CENTRUM SILVER [Concomitant]
  6. MELOXICAM [Concomitant]
     Dosage: 15MG
  7. MAGNESIUM OXIDE [Concomitant]
     Dosage: 400 MG, BID
  8. PRAVASTATIN SODIUM [Concomitant]
     Dosage: 40MG
  9. FUROSEMIDE [Concomitant]
     Dosage: 20 MG, BID
  10. KAPIDEX [Concomitant]
     Dosage: 60MG
  11. ALPRAZOLAM [Concomitant]
     Dosage: 1MG
  12. GABAPENTIN [Concomitant]
     Dosage: 1500MG NIGHTLY
  13. ASPIRIN [Concomitant]
     Dosage: 324 MG
  14. HYDROCODONE [Concomitant]
     Dosage: 5/500MG BID
  15. CYMBALTA [Concomitant]
     Dosage: 60 MG, QD
  16. CARVEDILOL [Concomitant]
     Dosage: 25MG
  17. ACETAMINOPHEN [Concomitant]
  18. FLOMAX [Concomitant]
     Dosage: 0.4MG

REACTIONS (5)
  - DIABETIC NEUROPATHY [None]
  - FOOT FRACTURE [None]
  - HALLUCINATION [None]
  - LUMBAR PUNCTURE [None]
  - PYREXIA [None]
